FAERS Safety Report 5750280-5 (Version None)
Quarter: 2008Q2

REPORT INFORMATION
  Report Type: 
  Country: None (occurrence: None)
  Receive Date: 20080522
  Receipt Date: 20080522
  Transmission Date: 20081010
  Serious: Yes (Hospitalization)
  Sender: FDA-Public Use
  Company Number: None

PATIENT
  Age: 78 Year
  Sex: Female
  Weight: 70.3075 kg

DRUGS (8)
  1. DIGITEK 250MCG MYLAN [Suspect]
     Indication: ATRIAL FIBRILLATION
     Dosage: 1 TABLET QD PO
     Route: 048
     Dates: start: 20010501, end: 20080502
  2. LANOXIN [Suspect]
     Indication: ATRIAL FIBRILLATION
     Dosage: 1 TABLET QD PO
     Route: 048
     Dates: start: 20080503, end: 20080509
  3. LISINOPRIL [Concomitant]
  4. FENTANYL TRANSDERMAL SYSTEM [Concomitant]
  5. AMLODIPINE [Concomitant]
  6. OMEPRAZOLE [Concomitant]
  7. PROMETHAZINE [Concomitant]
  8. ALPRAZOLAM [Concomitant]

REACTIONS (4)
  - ASTHENIA [None]
  - NAUSEA [None]
  - SOMNOLENCE [None]
  - THERAPEUTIC AGENT TOXICITY [None]
